FAERS Safety Report 24309440 (Version 2)
Quarter: 2024Q3

REPORT INFORMATION
  Report Type: Spontaneous
  Country: US (occurrence: US)
  Receive Date: 20240911
  Receipt Date: 20240925
  Transmission Date: 20241017
  Serious: No
  Sender: MERZ
  Company Number: US-Merz Pharmaceuticals GmbH-2024080000248

PATIENT

DRUGS (2)
  1. XEOMIN [Suspect]
     Active Substance: INCOBOTULINUMTOXINA
     Indication: Product used for unknown indication
     Dosage: 50 025
     Dates: start: 20240729, end: 20240729
  2. XEOMIN [Suspect]
     Active Substance: INCOBOTULINUMTOXINA
     Dosage: 50 025
     Dates: start: 20240814, end: 20240814

REACTIONS (1)
  - Therapeutic response decreased [Recovered/Resolved]

NARRATIVE: CASE EVENT DATE: 20240101
